FAERS Safety Report 11393211 (Version 2)
Quarter: 2015Q4

REPORT INFORMATION
  Report Type: Spontaneous
  Country: US (occurrence: US)
  Receive Date: 20150818
  Receipt Date: 20151110
  Transmission Date: 20160304
  Serious: Yes (Hospitalization, Other)
  Sender: FDA-Public Use
  Company Number: US-ELI_LILLY_AND_COMPANY-US201508003845

PATIENT
  Age: 72 Year
  Sex: Female

DRUGS (26)
  1. METFORMIN [Concomitant]
     Active Substance: METFORMIN HYDROCHLORIDE
  2. METOPROLOL [Concomitant]
     Active Substance: METOPROLOL
  3. BORON [Concomitant]
     Active Substance: BORON
  4. D-3 [Concomitant]
     Active Substance: CHOLECALCIFEROL
  5. BIOTIN                             /08249501/ [Concomitant]
  6. HUMALOG [Concomitant]
     Active Substance: INSULIN LISPRO
  7. NAMENDA [Concomitant]
     Active Substance: MEMANTINE HYDROCHLORIDE
  8. EPA                                /01403701/ [Concomitant]
  9. GLIMEPIRIDE. [Concomitant]
     Active Substance: GLIMEPIRIDE
  10. ASPIRIN                            /00002701/ [Concomitant]
     Active Substance: ASPIRIN
  11. CALCIUM                            /07357001/ [Concomitant]
  12. PHOSPHATIDYL SERINE [Concomitant]
     Active Substance: PHOSPHATIDYL SERINE
  13. FORTEO [Suspect]
     Active Substance: TERIPARATIDE
  14. PLAVIX [Concomitant]
     Active Substance: CLOPIDOGREL BISULFATE
  15. CAPRYLIC ACID [Concomitant]
  16. FORTEO [Suspect]
     Active Substance: TERIPARATIDE
     Indication: OSTEOPOROSIS
     Dosage: UNK, QD
     Route: 065
     Dates: start: 201502
  17. CLARITIN [Concomitant]
     Active Substance: LORATADINE
  18. B-COMPLEX                          /00003501/ [Concomitant]
     Active Substance: CYANOCOBALAMIN\DEXPANTHENOL\NIACINAMIDE\PYRIDOXINE HYDROCHLORIDE\RIBOFLAVIN 5^-PHOSPHATE SODIUM\THIAMINE HYDROCHLORIDE\VITAMIN B COMPLEX
  19. DHA [Concomitant]
     Active Substance: DIETARY SUPPLEMENT
  20. HUMALOG [Suspect]
     Active Substance: INSULIN LISPRO
     Indication: TYPE 2 DIABETES MELLITUS
     Dosage: UNK, PRN
     Route: 065
  21. DILTIAZEM [Concomitant]
     Active Substance: DILTIAZEM
  22. CRESTOR [Concomitant]
     Active Substance: ROSUVASTATIN CALCIUM
  23. CHROMIUM [Concomitant]
     Active Substance: CHROMIC CHLORIDE\CHROMIUM
  24. MAGNESIUM [Concomitant]
     Active Substance: MAGNESIUM
  25. VANADYL SULFATE [Concomitant]
     Active Substance: VANADYL SULFATE
  26. ESTER C                            /00008001/ [Concomitant]

REACTIONS (14)
  - Cardiac discomfort [Unknown]
  - Malaise [Unknown]
  - Macular hole [Unknown]
  - Humerus fracture [Unknown]
  - Blood glucose increased [Unknown]
  - Asthenia [Recovering/Resolving]
  - Fall [Unknown]
  - Cataract [Unknown]
  - Decreased appetite [Unknown]
  - Upper limb fracture [Unknown]
  - Cardiac stress test abnormal [Unknown]
  - Tendonitis [Unknown]
  - Arthritis [Unknown]
  - Osteoporosis [Unknown]

NARRATIVE: CASE EVENT DATE: 20151018
